FAERS Safety Report 7290091-5 (Version None)
Quarter: 2011Q1

REPORT INFORMATION
  Report Type: 
  Country: None (occurrence: None)
  Receive Date: 20110214
  Receipt Date: 20110208
  Transmission Date: 20110831
  Serious: Yes (Other)
  Sender: FDA-Public Use
  Company Number: JP-BRISTOL-MYERS SQUIBB COMPANY-15537723

PATIENT

DRUGS (2)
  1. VEPESID [Concomitant]
  2. PARAPLATIN [Suspect]

REACTIONS (1)
  - ILEUS PARALYTIC [None]
